FAERS Safety Report 4347122-1 (Version None)
Quarter: 2004Q1

REPORT INFORMATION
  Report Type: 
  Country: None (occurrence: None)
  Receive Date: 20040329
  Receipt Date: 20040211
  Transmission Date: 20041129
  Serious: No
  Sender: FDA-Public Use
  Company Number: USA040259078

PATIENT
  Age: 53 Year
  Sex: Male
  Weight: 105 kg

DRUGS (7)
  1. STRATTERA [Suspect]
     Indication: ATTENTION DEFICIT/HYPERACTIVITY DISORDER
     Dosage: 40 MG/DAY
     Dates: start: 20040208
  2. WELLBUTRIN SR [Concomitant]
  3. AVALIDE [Concomitant]
  4. GLUCOPHAGE [Concomitant]
  5. VARDENAFIL HYDROCHLORIDE [Concomitant]
  6. TESTOSTERONE [Concomitant]
  7. REMERON [Concomitant]

REACTIONS (5)
  - DISTURBANCE IN SEXUAL AROUSAL [None]
  - DYSURIA [None]
  - INSOMNIA [None]
  - MICTURITION URGENCY [None]
  - URINE FLOW DECREASED [None]
